FAERS Safety Report 9263135 (Version 1)
Quarter: 2013Q2

REPORT INFORMATION
  Report Type: Spontaneous
  Country: DE (occurrence: DE)
  Receive Date: 20130430
  Receipt Date: 20130430
  Transmission Date: 20140414
  Serious: Yes (Other)
  Sender: FDA-Public Use
  Company Number: DE-TEVA-398502GER

PATIENT
  Age: 21 Year
  Sex: Female
  Weight: 59 kg

DRUGS (1)
  1. DOXAZOSIN 2MG [Suspect]
     Indication: HYPERTENSION
     Route: 048
     Dates: start: 20121206, end: 20121221

REACTIONS (1)
  - Pancytopenia [Recovered/Resolved]
